FAERS Safety Report 10205578 (Version 1)
Quarter: 2014Q2

REPORT INFORMATION
  Report Type: Spontaneous
  Country: US (occurrence: US)
  Receive Date: 20140529
  Receipt Date: 20140529
  Transmission Date: 20141212
  Serious: No
  Sender: FDA-Public Use
  Company Number: US-009507513-1405USA014865

PATIENT
  Age: 32 Year
  Sex: Female
  Weight: 63.49 kg

DRUGS (2)
  1. IMPLANON [Suspect]
     Indication: CONTRACEPTION
     Dosage: 1 ROD EVERY THREE (3) YEARS
     Route: 059
     Dates: start: 20110114
  2. AMBIEN [Concomitant]
     Dosage: UNK, QPM

REACTIONS (3)
  - Migraine [Unknown]
  - Menstruation irregular [Unknown]
  - Incorrect drug administration duration [Unknown]
